FAERS Safety Report 12211909 (Version 1)
Quarter: 2016Q1

REPORT INFORMATION
  Report Type: Report from Study
  Country: CA (occurrence: CA)
  Receive Date: 20160325
  Receipt Date: 20160325
  Transmission Date: 20160526
  Serious: Yes (Hospitalization)
  Sender: FDA-Public Use
  Company Number: CA-AMGEN-CANSL2016034713

PATIENT
  Sex: Female

DRUGS (1)
  1. ENBREL [Suspect]
     Active Substance: ETANERCEPT
     Indication: RHEUMATOID ARTHRITIS
     Dosage: 50 MG, UNK
     Route: 065
     Dates: start: 20061125

REACTIONS (6)
  - Fall [Unknown]
  - Lower limb fracture [Unknown]
  - Spinal cord neoplasm [Unknown]
  - Confusional state [Not Recovered/Not Resolved]
  - Walking aid user [Unknown]
  - Memory impairment [Unknown]
